FAERS Safety Report 5430320-3 (Version None)
Quarter: 2007Q3

REPORT INFORMATION
  Report Type: 
  Country: None (occurrence: None)
  Receive Date: 20070830
  Receipt Date: 20070821
  Transmission Date: 20080115
  Serious: Yes (Other)
  Sender: FDA-Public Use
  Company Number: PHBS2007US14082

PATIENT
  Age: 26 Year
  Sex: Female

DRUGS (6)
  1. HYDRALAZINE HCL [Suspect]
     Indication: PERIPARTUM CARDIOMYOPATHY
  2. METOPROLOL SUCCINATE [Suspect]
     Indication: PERIPARTUM CARDIOMYOPATHY
  3. DIGOXIN [Suspect]
     Indication: PERIPARTUM CARDIOMYOPATHY
  4. NITRATES [Suspect]
     Indication: PERIPARTUM CARDIOMYOPATHY
  5. IRON SUPPLEMENTS [Suspect]
     Indication: PERIPARTUM CARDIOMYOPATHY
  6. LISINOPRIL [Suspect]
     Indication: PERIPARTUM CARDIOMYOPATHY

REACTIONS (13)
  - ATRIAL FLUTTER [None]
  - CARDIAC ELECTROPHYSIOLOGIC STUDY ABNORMAL [None]
  - DRUG EXPOSURE DURING PREGNANCY [None]
  - EJECTION FRACTION DECREASED [None]
  - ELECTROCARDIOGRAM AMBULATORY [None]
  - HEART DISEASE CONGENITAL [None]
  - HIGH FREQUENCY ABLATION [None]
  - INDUCED LABOUR [None]
  - PALPITATIONS [None]
  - PREMATURE LABOUR [None]
  - SUPRAVENTRICULAR EXTRASYSTOLES [None]
  - VENTRICULAR EXTRASYSTOLES [None]
  - VENTRICULAR TACHYCARDIA [None]
